FAERS Safety Report 4665426-X (Version None)
Quarter: 2005Q2

REPORT INFORMATION
  Report Type: 
  Country: None (occurrence: None)
  Receive Date: 20050518
  Receipt Date: 20050518
  Transmission Date: 20051028
  Serious: Yes (Hospitalization)
  Sender: FDA-Public Use
  Company Number: None

PATIENT
  Sex: Male

DRUGS (12)
  1. GLYBURIDE [Suspect]
     Indication: DIABETES MELLITUS
     Dosage: 10MG  AM ORAL
     Route: 048
  2. ROSIGLITAZONE MALEATE [Suspect]
     Indication: DIABETES MELLITUS
     Dosage: 4 MG BID ORAL
     Route: 048
  3. FERROUS SULFATE TAB [Concomitant]
  4. FOLIC ACID [Concomitant]
  5. MULTI-VITAMIN [Concomitant]
  6. OMEPRAZOLE [Concomitant]
  7. THIAMINE [Concomitant]
  8. LORAZEPAM [Concomitant]
  9. GABAPENTIN [Concomitant]
  10. QUETIAPINE [Concomitant]
  11. APAP TAB [Concomitant]
  12. MIRTAZAPINE [Concomitant]

REACTIONS (2)
  - BLOOD GLUCOSE DECREASED [None]
  - MENTAL STATUS CHANGES [None]
